FAERS Safety Report 25102959 (Version 2)
Quarter: 2025Q2

REPORT INFORMATION
  Report Type: Spontaneous
  Country: NZ (occurrence: NZ)
  Receive Date: 20250321
  Receipt Date: 20250422
  Transmission Date: 20250716
  Serious: Yes (Other)
  Sender: RANBAXY
  Company Number: NZ-SUN PHARMACEUTICAL INDUSTRIES LTD-2025R1-499831

PATIENT
  Age: 26 Year
  Sex: Female

DRUGS (1)
  1. MEDROXYPROGESTERONE [Suspect]
     Active Substance: MEDROXYPROGESTERONE
     Indication: Contraception
     Route: 065

REACTIONS (4)
  - Atrophic vulvovaginitis [Recovered/Resolved]
  - Genital pain [Unknown]
  - Dyspareunia [Unknown]
  - Amenorrhoea [Unknown]
